FAERS Safety Report 9752179 (Version 1)
Quarter: 2013Q4

REPORT INFORMATION
  Report Type: Spontaneous
  Country: US (occurrence: None)
  Receive Date: 20131211
  Receipt Date: 20131211
  Transmission Date: 20140711
  Serious: No
  Sender: FDA-Public Use
  Company Number: None

PATIENT
  Age: 7 Year
  Sex: Female

DRUGS (1)
  1. DIFFERIN LOTION .1% [Suspect]
     Indication: ACNE
     Dosage: TOPICAL ONCE DAILY
     Route: 061
     Dates: start: 20131204

REACTIONS (1)
  - Treatment failure [None]
